FAERS Safety Report 4289787-9 (Version None)
Quarter: 2004Q1

REPORT INFORMATION
  Report Type: 
  Country: None (occurrence: None)
  Receive Date: 20040210
  Receipt Date: 20040126
  Transmission Date: 20041129
  Serious: Yes (Other)
  Sender: FDA-Public Use
  Company Number: FR-GLAXOSMITHKLINE-B0321262A

PATIENT
  Age: 38 Year
  Sex: Female

DRUGS (2)
  1. LAMICTAL [Suspect]
     Indication: POST-TRAUMATIC EPILEPSY
     Route: 065
     Dates: start: 20010101, end: 20040120
  2. CONTRACEPTIVE IMPLANT [Concomitant]
     Indication: CONTRACEPTION
     Dates: start: 20020101, end: 20030301

REACTIONS (3)
  - MALAISE [None]
  - MENOMETRORRHAGIA [None]
  - THROMBOCYTOPENIA [None]
